FAERS Safety Report 23777321 (Version 3)
Quarter: 2024Q2

REPORT INFORMATION
  Report Type: Report from Study
  Country: US (occurrence: US)
  Receive Date: 20240424
  Receipt Date: 20240607
  Transmission Date: 20240715
  Serious: Yes (Hospitalization, Other)
  Sender: FDA-Public Use
  Company Number: US-ARGENX-2024-ARGX-US002192

PATIENT

DRUGS (1)
  1. VYVGART [Suspect]
     Active Substance: EFGARTIGIMOD ALFA-FCAB
     Indication: Myasthenia gravis
     Dosage: UNK
     Route: 042
     Dates: start: 20240318

REACTIONS (12)
  - Metastatic squamous cell carcinoma [Unknown]
  - Ear infection [Unknown]
  - Somnolence [Unknown]
  - Tremor [Unknown]
  - Abnormal dreams [Unknown]
  - Asthenia [Unknown]
  - Fall [Unknown]
  - Fatigue [Unknown]
  - Fatigue [Unknown]
  - Gait disturbance [Unknown]
  - Sleep disorder [Unknown]
  - Procedural pain [Unknown]

NARRATIVE: CASE EVENT DATE: 20240301
